FAERS Safety Report 15060201 (Version 18)
Quarter: 2019Q3

REPORT INFORMATION
  Report Type: Report from Study
  Country: US (occurrence: US)
  Receive Date: 20180625
  Receipt Date: 20190927
  Transmission Date: 20191004
  Serious: Yes (Hospitalization, Other)
  Sender: FDA-Public Use
  Company Number: PHHY2018US071419

PATIENT
  Age: 1 Year
  Sex: Male
  Weight: 20.8 kg

DRUGS (9)
  1. REGLAN [Concomitant]
     Active Substance: METOCLOPRAMIDE HYDROCHLORIDE
     Dosage: 3.7 MG, UNK
     Route: 048
     Dates: start: 201803
  2. TRAMETINIB [Suspect]
     Active Substance: TRAMETINIB
     Dosage: 0.4 MG, QD 3 DAYS ON AND 1 DAY OFF
     Route: 048
     Dates: end: 20190108
  3. MIRALAX [Concomitant]
     Active Substance: POLYETHYLENE GLYCOL 3350
     Indication: CONSTIPATION
     Dosage: 8.5 MG, UNK
     Route: 048
     Dates: start: 201803
  4. CALCIUM CARBONATE. [Concomitant]
     Active Substance: CALCIUM CARBONATE
     Indication: OSTEOPENIA
     Dosage: 375 MG, UNK
     Route: 048
     Dates: start: 20190227
  5. TRAMETINIB [Suspect]
     Active Substance: TRAMETINIB
     Indication: GLIOMA
     Dosage: 0.5 MG, QD  3 DAYS ON AND 1 DAY OFF
     Route: 048
     Dates: start: 20180321, end: 20180606
  6. HYDROCORTISONE. [Concomitant]
     Active Substance: HYDROCORTISONE
     Indication: ADRENAL INSUFFICIENCY
     Dosage: 2.5 MG, UNK
     Route: 048
     Dates: start: 201803
  7. REGLAN [Concomitant]
     Active Substance: METOCLOPRAMIDE HYDROCHLORIDE
     Indication: NAUSEA
     Dosage: 2.5 MG, UNK
     Route: 048
     Dates: start: 201803
  8. MEGACE [Concomitant]
     Active Substance: MEGESTROL ACETATE
     Indication: APPETITE DISORDER
     Dosage: 52 MG, UNK
     Route: 048
     Dates: start: 201803
  9. TRAMETINIB [Suspect]
     Active Substance: TRAMETINIB
     Dosage: 0.7 MG, 3 DAYS ON AND 1 DAY OFF
     Route: 048

REACTIONS (38)
  - Blood creatine phosphokinase increased [Recovered/Resolved]
  - Rash [Recovered/Resolved]
  - Alanine aminotransferase increased [Recovered/Resolved]
  - Weight increased [Unknown]
  - Osteopenia [Not Recovered/Not Resolved]
  - Wrist fracture [Not Recovered/Not Resolved]
  - Hypokalaemia [Recovered/Resolved]
  - Aspartate aminotransferase increased [Recovered/Resolved]
  - Blood chloride increased [Recovered/Resolved]
  - Ingrowing nail [Unknown]
  - Skin infection [Recovered/Resolved]
  - Dental caries [Recovered/Resolved]
  - Hyponatraemia [Recovered/Resolved]
  - Ataxia [Recovered/Resolved]
  - Blood alkaline phosphatase increased [Not Recovered/Not Resolved]
  - Blood creatine phosphokinase increased [Recovered/Resolved]
  - Blood creatine increased [Not Recovered/Not Resolved]
  - Tibia fracture [Recovered/Resolved]
  - Blood calcium increased [Recovered/Resolved]
  - Vitamin D deficiency [Recovered/Resolved]
  - Pyrexia [Recovered/Resolved]
  - Diarrhoea [Recovered/Resolved]
  - Blood creatine phosphokinase increased [Recovered/Resolved]
  - Blood creatine phosphokinase increased [Recovered/Resolved]
  - Inappropriate antidiuretic hormone secretion [Unknown]
  - Radius fracture [Recovered/Resolved]
  - Paronychia [Recovering/Resolving]
  - Aspartate aminotransferase increased [Recovered/Resolved]
  - Abdominal pain [Recovered/Resolved]
  - Blood phosphorus decreased [Recovered/Resolved]
  - Anaemia [Recovered/Resolved]
  - Lymphocyte count decreased [Recovered/Resolved]
  - Pyrexia [Recovered/Resolved with Sequelae]
  - Cough [Unknown]
  - Aspartate aminotransferase increased [Recovered/Resolved]
  - Femur fracture [Not Recovered/Not Resolved]
  - Hypertension [Recovering/Resolving]
  - Clostridium test positive [Unknown]

NARRATIVE: CASE EVENT DATE: 20180321
